FAERS Safety Report 10512031 (Version 1)
Quarter: 2014Q4

REPORT INFORMATION
  Report Type: Spontaneous
  Country: US (occurrence: US)
  Receive Date: 20141010
  Receipt Date: 20141010
  Transmission Date: 20150528
  Serious: Yes (Hospitalization, Other)
  Sender: FDA-Public Use
  Company Number: US-B.I. PHARMACEUTICALS,INC./RIDGEFIELD-2014-BI-47704BP

PATIENT
  Age: 0 Year
  Sex: Female
  Weight: 67.13 kg

DRUGS (9)
  1. DIURETIC [Concomitant]
     Active Substance: UNSPECIFIED INGREDIENT
     Indication: PRODUCT USED FOR UNKNOWN INDICATION
     Route: 065
  2. CARDIZEM [Concomitant]
     Active Substance: DILTIAZEM HYDROCHLORIDE
     Indication: HEART RATE ABNORMAL
  3. FORTEO [Concomitant]
     Active Substance: TERIPARATIDE
     Indication: OSTEOPOROSIS
     Route: 065
  4. COUMADIN [Suspect]
     Active Substance: WARFARIN SODIUM
     Indication: ATRIAL FIBRILLATION
     Route: 065
     Dates: start: 201105
  5. PRADAXA [Suspect]
     Active Substance: DABIGATRAN ETEXILATE MESYLATE
     Indication: ATRIAL FIBRILLATION
     Dosage: 300 MG
     Route: 048
     Dates: start: 20110329, end: 20110509
  6. ATENOLOL. [Concomitant]
     Active Substance: ATENOLOL
     Indication: PRODUCT USED FOR UNKNOWN INDICATION
     Dosage: 25 MG
     Route: 065
  7. CARDIZEM [Concomitant]
     Active Substance: DILTIAZEM HYDROCHLORIDE
     Indication: HYPERTENSION
     Route: 065
  8. LOSARTAN [Suspect]
     Active Substance: LOSARTAN
     Indication: CARDIAC FAILURE
     Route: 065
     Dates: end: 20110524
  9. HYDROCHLOROTHIAZIDE. [Suspect]
     Active Substance: HYDROCHLOROTHIAZIDE
     Indication: CARDIAC FAILURE
     Dosage: LOW DOSE
     Route: 065
     Dates: end: 20110524

REACTIONS (14)
  - Urinary tract infection [Unknown]
  - Pubis fracture [Unknown]
  - Anticoagulation drug level below therapeutic [Unknown]
  - Hypotension [Unknown]
  - Haemorrhage subcutaneous [Unknown]
  - Cough [Unknown]
  - Cerebrovascular accident [Unknown]
  - Increased tendency to bruise [Unknown]
  - Fall [Unknown]
  - Anticoagulation drug level below therapeutic [Unknown]
  - Cerebrovascular accident [Recovered/Resolved]
  - Syncope [Unknown]
  - Nausea [Unknown]
  - Hypoxia [Unknown]

NARRATIVE: CASE EVENT DATE: 20110509
